FAERS Safety Report 8213764-6 (Version None)
Quarter: 2012Q1

REPORT INFORMATION
  Report Type: 
  Country: None (occurrence: None)
  Receive Date: 20120316
  Receipt Date: 20120313
  Transmission Date: 20120608
  Serious: Yes (Death)
  Sender: FDA-Public Use
  Company Number: PHHY2012DO022529

PATIENT
  Age: 79 Year
  Sex: Male

DRUGS (2)
  1. EXELON [Suspect]
     Dosage: 9.5 MG/ 24HRS
     Route: 062
  2. EXELON [Suspect]
     Dosage: 4.6 M/ 24HRS
     Route: 062

REACTIONS (1)
  - DEATH [None]
